FAERS Safety Report 12798074 (Version 1)
Quarter: 2016Q3

REPORT INFORMATION
  Report Type: Report from Study
  Country: US (occurrence: US)
  Receive Date: 20160930
  Receipt Date: 20160930
  Transmission Date: 20161109
  Serious: Yes (Hospitalization, Other)
  Sender: FDA-Public Use
  Company Number: US-ROCHE-783517

PATIENT
  Age: 76 Year
  Sex: Female
  Weight: 53.9 kg

DRUGS (5)
  1. CEFTRIAXONE. [Concomitant]
     Active Substance: CEFTRIAXONE
     Route: 065
  2. PACLITAXEL. [Suspect]
     Active Substance: PACLITAXEL
     Indication: ENDOMETRIAL CANCER
     Dosage: 175 MG/M2 OVER 3 HRS ON DAY 1 X 6 CYCLES
     Route: 042
  3. NEUPOGEN [Concomitant]
     Active Substance: FILGRASTIM
     Route: 065
  4. CARBOPLATIN. [Suspect]
     Active Substance: CARBOPLATIN
     Indication: ENDOMETRIAL CANCER
     Dosage: CARBOPLATIN: AUC = 6 IV OVER 30 MINUTES ON DAY 1 X 6 CYCLES
     Route: 042
  5. BEVACIZUMAB [Suspect]
     Active Substance: BEVACIZUMAB
     Indication: ENDOMETRIAL CANCER
     Dosage: 15 MG/KG OVER 30-90 MINUTES ON DAY 1 (STARTING WITH CYCLE 2).
     Route: 042
     Dates: start: 20100709, end: 20121010

REACTIONS (7)
  - Haemoglobin decreased [Recovered/Resolved]
  - Acidosis [Unknown]
  - Dehydration [Recovered/Resolved]
  - Proteinuria [Unknown]
  - White blood cell count decreased [Unknown]
  - Neutrophil count decreased [Unknown]
  - Anaemia [Unknown]

NARRATIVE: CASE EVENT DATE: 20100928
